FAERS Safety Report 17507542 (Version 3)
Quarter: 2020Q1

REPORT INFORMATION
  Report Type: Spontaneous
  Country: FR (occurrence: FR)
  Receive Date: 20200306
  Receipt Date: 20200316
  Transmission Date: 20200409
  Serious: Yes (Life-Threatening)
  Sender: FDA-Public Use
  Company Number: FR-EMD SERONO-E2B_90075584

PATIENT
  Age: 62 Year
  Sex: Male
  Weight: 103 kg

DRUGS (14)
  1. VENLAFAXINE [Concomitant]
     Active Substance: VENLAFAXINE HYDROCHLORIDE
     Dosage: 7 TABLETS OF VENTAFAXINE 75 MG
     Route: 048
     Dates: start: 20191011, end: 20191011
  2. MIRTAZAPINE. [Concomitant]
     Active Substance: MIRTAZAPINE
     Dosage: 20 TABLETS OF MIRTAZAPINE 15 MG
     Route: 048
     Dates: start: 20191011, end: 20191011
  3. ALPRAZOLAM. [Concomitant]
     Active Substance: ALPRAZOLAM
     Indication: DEPRESSION
     Dosage: 1 DOSAGE FORM THREE TIMES DAILY (USUAL TREATMENT)
     Route: 048
  4. METFORMIN [Suspect]
     Active Substance: METFORMIN HYDROCHLORIDE
     Indication: TYPE 2 DIABETES MELLITUS
     Dosage: 1 DOSAGE FORM TWO TIMES DAILY, THE MORNING AND THE EVENING (USUAL TREATMENT)
     Route: 048
  5. XARELTO [Concomitant]
     Active Substance: RIVAROXABAN
     Indication: PULMONARY EMBOLISM
     Dosage: 1 DOSAGE FORM DAILY (USUAL TREATMENT)
     Route: 048
  6. METFORMIN [Suspect]
     Active Substance: METFORMIN HYDROCHLORIDE
     Dosage: 1700 MG (850 MG 20 TABLETS)
     Route: 048
     Dates: start: 20191011, end: 20191011
  7. VENLAFAXINE [Concomitant]
     Active Substance: VENLAFAXINE HYDROCHLORIDE
     Indication: DEPRESSION
     Dosage: 1 DOSAGE FORM DAILY THE MORNING  (USUAL TREATMENT)
     Route: 048
  8. RAMIPRIL. [Concomitant]
     Active Substance: RAMIPRIL
     Dosage: 8 TABLETS OF RAMIPRIL 5 MG
     Route: 048
     Dates: start: 20191011, end: 20191011
  9. MIRTAZAPINE. [Concomitant]
     Active Substance: MIRTAZAPINE
     Indication: DEPRESSION
     Dosage: 1 DOSAGE FORM DAILY IN THE EVENING (USUAL TREATMENT)
     Route: 048
  10. ALPRAZOLAM. [Concomitant]
     Active Substance: ALPRAZOLAM
     Dosage: 45 TABLETS OF ALPRAZOLAM 0.5 MG
     Route: 048
     Dates: start: 20191011
  11. RAMIPRIL. [Concomitant]
     Active Substance: RAMIPRIL
     Indication: DIABETES MELLITUS
     Dosage: 1 DOSAGE FORM DAILY THE MORNING USUAL TREATMENTS (USUAL TREATMENT)
     Route: 048
  12. SIMVASTATINE [Concomitant]
     Active Substance: SIMVASTATIN
     Indication: PRODUCT USED FOR UNKNOWN INDICATION
     Dosage: 1 DOSAGE FORM DAILY THE EVENING (USUAL TREATMENT)
     Route: 048
  13. SIMVASTATINE [Concomitant]
     Active Substance: SIMVASTATIN
     Dosage: 9 TABLETS OF SIMVASTATIN 20 MG
     Route: 048
     Dates: start: 20191011, end: 20191011
  14. XARELTO [Concomitant]
     Active Substance: RIVAROXABAN
     Dosage: 2 BLISTERS OF XARELTO 20 MG
     Route: 048
     Dates: start: 20191011, end: 20191011

REACTIONS (2)
  - Suicide attempt [Recovered/Resolved]
  - Metabolic acidosis [Recovered/Resolved]

NARRATIVE: CASE EVENT DATE: 20191012
